FAERS Safety Report 10744595 (Version 1)
Quarter: 2015Q1

REPORT INFORMATION
  Report Type: Spontaneous
  Country: US (occurrence: None)
  Receive Date: 20150126
  Receipt Date: 20150126
  Transmission Date: 20150721
  Serious: Yes (Hospitalization, Disabling)
  Sender: FDA-Public Use
  Company Number: None

PATIENT
  Age: 33 Year
  Sex: Female
  Weight: 47.63 kg

DRUGS (1)
  1. TOPAMAX [Suspect]
     Active Substance: TOPIRAMATE
     Indication: MIGRAINE
     Dosage: TOPOMAX 3 PILLS  ONCE DAILY TAKEN BY MOUTH
     Route: 048
     Dates: start: 20130902, end: 20141216

REACTIONS (4)
  - Migraine [None]
  - Hallucination [None]
  - Delusion [None]
  - Paranoia [None]

NARRATIVE: CASE EVENT DATE: 20141117
